FAERS Safety Report 4861131-5 (Version None)
Quarter: 2005Q4

REPORT INFORMATION
  Report Type: 
  Country: None (occurrence: None)
  Receive Date: 20051216
  Receipt Date: 20051128
  Transmission Date: 20060501
  Serious: Yes (Other)
  Sender: FDA-Public Use
  Company Number: US_0504115670

PATIENT
  Age: 44 Year
  Sex: Male
  Weight: 104.5 kg

DRUGS (5)
  1. ZYPREXA [Suspect]
     Indication: ANXIETY
     Dosage: 7.5 MG, EACH EVENING, ORAL; SEE IMAGE
     Route: 048
     Dates: end: 20000207
  2. ZYPREXA [Suspect]
     Indication: ANXIETY
     Dosage: 7.5 MG, EACH EVENING, ORAL; SEE IMAGE
     Route: 048
     Dates: start: 20000725, end: 20000905
  3. ZYPREXA [Suspect]
     Indication: ANXIETY
     Dosage: 7.5 MG, EACH EVENING, ORAL; SEE IMAGE
     Route: 048
     Dates: start: 20000905
  4. PROPECIA /SWE/(FINASTERIDE) [Concomitant]
  5. PRINZIDE [Concomitant]

REACTIONS (13)
  - ALANINE AMINOTRANSFERASE INCREASED [None]
  - ALCOHOLISM [None]
  - ASPARTATE AMINOTRANSFERASE INCREASED [None]
  - ASTHENIA [None]
  - BLOOD CHOLESTEROL INCREASED [None]
  - BLOOD TRIGLYCERIDES INCREASED [None]
  - DIABETES MELLITUS [None]
  - ERECTILE DYSFUNCTION [None]
  - HIGH DENSITY LIPOPROTEIN DECREASED [None]
  - JOINT INJURY [None]
  - LOW DENSITY LIPOPROTEIN INCREASED [None]
  - POSTOPERATIVE THROMBOSIS [None]
  - WEIGHT INCREASED [None]
